FAERS Safety Report 9834666 (Version 2)
Quarter: 2014Q1

REPORT INFORMATION
  Report Type: Spontaneous
  Country: US (occurrence: US)
  Receive Date: 20140122
  Receipt Date: 20140122
  Transmission Date: 20141002
  Serious: Yes (Other)
  Sender: FDA-Public Use
  Company Number: US-JNJFOC-20131203693

PATIENT
  Age: 48 Year
  Sex: Female

DRUGS (5)
  1. REMICADE [Suspect]
     Indication: PSORIASIS
     Route: 042
     Dates: start: 20131126
  2. BENADRYL [Concomitant]
     Route: 065
  3. TRAMADOL HCL [Concomitant]
     Route: 065
  4. CLOBETASOL PROPIONATE [Concomitant]
     Indication: PSORIASIS
     Route: 065
     Dates: start: 20131024
  5. TACLONEX [Concomitant]
     Indication: PSORIASIS
     Route: 065
     Dates: start: 20130819, end: 20131114

REACTIONS (5)
  - Psoriasis [Not Recovered/Not Resolved]
  - Cholangitis [Unknown]
  - Gallbladder operation [Unknown]
  - Drug effect decreased [Unknown]
  - Glossodynia [Unknown]
